FAERS Safety Report 21691952 (Version 1)
Quarter: 2022Q4

REPORT INFORMATION
  Report Type: Spontaneous
  Country: US (occurrence: US)
  Receive Date: 20221207
  Receipt Date: 20221207
  Transmission Date: 20230112
  Serious: No
  Sender: FDA-Public Use
  Company Number: US-GLENMARK PHARMACEUTICALS-2022GMK072725

PATIENT

DRUGS (3)
  1. ZONISAMIDE [Suspect]
     Active Substance: ZONISAMIDE
     Indication: Intracranial pressure increased
     Dosage: UNK
     Route: 048
  2. ZONISAMIDE [Suspect]
     Active Substance: ZONISAMIDE
     Indication: Idiopathic intracranial hypertension
     Dosage: UNK
     Route: 048
  3. ZONISAMIDE [Suspect]
     Active Substance: ZONISAMIDE
     Dosage: UNK
     Route: 048

REACTIONS (6)
  - Recalled product administered [Unknown]
  - Product use in unapproved indication [Unknown]
  - Dyskinesia [Unknown]
  - Head titubation [Unknown]
  - Somnolence [Unknown]
  - Disturbance in attention [Unknown]
